FAERS Safety Report 8823972 (Version 1)
Quarter: 2012Q4

REPORT INFORMATION
  Report Type: 
  Country: US (occurrence: US)
  Receive Date: 20121003
  Receipt Date: 20121003
  Transmission Date: 20130627
  Serious: Yes (Other)
  Sender: FDA-Public Use
  Company Number: US-009507513-1210USA000867

PATIENT
  Age: 37 Year
  Sex: Female

DRUGS (1)
  1. JANUMET [Suspect]
     Dosage: 1 DF, UNK
     Route: 048

REACTIONS (8)
  - Fatigue [Unknown]
  - Restlessness [Unknown]
  - Poor quality sleep [Unknown]
  - Abdominal discomfort [Unknown]
  - Myalgia [Unknown]
  - Malaise [Unknown]
  - Headache [Unknown]
  - Abdominal distension [Unknown]
